FAERS Safety Report 5777411-5 (Version None)
Quarter: 2008Q2

REPORT INFORMATION
  Report Type: 
  Country: None (occurrence: None)
  Receive Date: 20080616
  Receipt Date: 20080606
  Transmission Date: 20081010
  Serious: Yes (Hospitalization)
  Sender: FDA-Public Use
  Company Number: Q08-007

PATIENT
  Age: 70 Year
  Sex: Male

DRUGS (1)
  1. QUADRAMET [Suspect]
     Indication: BONE PAIN

REACTIONS (3)
  - ASTHENIA [None]
  - DYSKINESIA [None]
  - TOXIC ENCEPHALOPATHY [None]
